FAERS Safety Report 6653111-4 (Version None)
Quarter: 2010Q1

REPORT INFORMATION
  Report Type: 
  Country: None (occurrence: None)
  Receive Date: 20100326
  Receipt Date: 20100322
  Transmission Date: 20100710
  Serious: Yes (Life-Threatening, Disabling)
  Sender: FDA-Public Use
  Company Number: PHHY2010GB17329

PATIENT
  Age: 91 Year
  Sex: Female
  Weight: 60 kg

DRUGS (4)
  1. ALISKIREN [Suspect]
     Indication: SYSTOLIC HYPERTENSION
     Dosage: 150 MG, UNK
     Route: 048
     Dates: start: 20091001, end: 20100209
  2. CALFOVIT D3 [Concomitant]
     Dosage: 1 DF, OD
     Route: 048
     Dates: start: 20040101
  3. ACETAMINOPHEN AND CODEINE PHOSPHATE [Concomitant]
     Indication: PAIN
     Dosage: 1 DF, 8 TIMES DAILY
     Route: 048
  4. OMEPRAZOLE [Concomitant]
     Dosage: 20 MG, UNK
     Route: 048
     Dates: start: 20100118

REACTIONS (1)
  - HYPONATRAEMIA [None]
